FAERS Safety Report 24910889 (Version 2)
Quarter: 2025Q1

REPORT INFORMATION
  Report Type: Spontaneous
  Country: US (occurrence: US)
  Receive Date: 20250131
  Receipt Date: 20250213
  Transmission Date: 20250409
  Serious: Yes (Other)
  Sender: TAKEDA
  Company Number: US-TAKEDA-2025TUS009318

PATIENT
  Sex: Female
  Weight: 50 kg

DRUGS (3)
  1. TRINTELLIX [Suspect]
     Active Substance: VORTIOXETINE HYDROBROMIDE
     Indication: Major depression
     Dosage: 400 MILLIGRAM, BID
     Dates: start: 202312, end: 202401
  2. TRINTELLIX [Suspect]
     Active Substance: VORTIOXETINE HYDROBROMIDE
     Dosage: 5 MILLIGRAM, QD
  3. TRINTELLIX [Suspect]
     Active Substance: VORTIOXETINE HYDROBROMIDE
     Dosage: 20 MILLIGRAM, QD

REACTIONS (9)
  - Condition aggravated [Unknown]
  - Multiple sclerosis [Unknown]
  - Seizure [Unknown]
  - Visual impairment [Unknown]
  - Insomnia [Unknown]
  - Prescribed overdose [Unknown]
  - Memory impairment [Unknown]
  - Dysphemia [Unknown]
  - Breast cyst [Unknown]
